FAERS Safety Report 23243560 (Version 1)
Quarter: 2023Q4

REPORT INFORMATION
  Report Type: Spontaneous
  Country: US (occurrence: US)
  Receive Date: 20231130
  Receipt Date: 20231130
  Transmission Date: 20240109
  Serious: No
  Sender: FDA-Public Use
  Company Number: US-Saptalis Pharmaceuticals,LLC-000395

PATIENT
  Sex: Female

DRUGS (1)
  1. ACETIC ACID [Suspect]
     Active Substance: ACETIC ACID
     Indication: Pruritus
     Dosage: 4 DROPS INTO EACH EAR FOR 10 DAYS
     Route: 001
     Dates: start: 20231102

REACTIONS (2)
  - Ear discomfort [Not Recovered/Not Resolved]
  - Product use in unapproved indication [Unknown]

NARRATIVE: CASE EVENT DATE: 20231101
